FAERS Safety Report 17540887 (Version 1)
Quarter: 2020Q1

REPORT INFORMATION
  Report Type: Spontaneous
  Country: US (occurrence: US)
  Receive Date: 20200313
  Receipt Date: 20200313
  Transmission Date: 20200409
  Serious: No
  Sender: FDA-Public Use
  Company Number: US-TARO-2019TAR00129

PATIENT
  Age: 8 Year
  Sex: Female
  Weight: 25.4 kg

DRUGS (4)
  1. LAMOTRIGINE (UNICHEM) [Concomitant]
     Dosage: 25 MG, 2X/DAY
     Route: 048
  2. FOCALIN [Concomitant]
     Active Substance: DEXMETHYLPHENIDATE HYDROCHLORIDE
  3. LAMOTRIGINE TABLETS 100 MG [Suspect]
     Active Substance: LAMOTRIGINE
     Indication: DISRUPTIVE MOOD DYSREGULATION DISORDER
     Dosage: 50 MG, 2X/DAY
     Route: 048
     Dates: start: 201902, end: 201902
  4. GUANFACINE. [Concomitant]
     Active Substance: GUANFACINE

REACTIONS (8)
  - Product substitution issue [Recovered/Resolved]
  - Off label use [Recovered/Resolved]
  - Aggression [Recovered/Resolved]
  - Abnormal behaviour [Recovered/Resolved]
  - Hypersomnia [Recovered/Resolved]
  - Anger [Recovered/Resolved]
  - Affect lability [Recovered/Resolved]
  - Mood altered [Recovered/Resolved]

NARRATIVE: CASE EVENT DATE: 201902
